FAERS Safety Report 9611868 (Version 1)
Quarter: 2013Q4

REPORT INFORMATION
  Report Type: Spontaneous
  Country: ES (occurrence: ES)
  Receive Date: 20131010
  Receipt Date: 20131010
  Transmission Date: 20140711
  Serious: Yes (Other)
  Sender: FDA-Public Use
  Company Number: ES-ROCHE-1286371

PATIENT
  Age: 44 Year
  Sex: Male

DRUGS (4)
  1. PEGASYS [Suspect]
     Indication: PRODUCT USED FOR UNKNOWN INDICATION
     Dosage: FROM  8TH WEEK  HE WAS STARTED 135 MCG DOSE OF PEG-INTERFERON ALFA 2A
     Route: 065
     Dates: start: 20120621, end: 20121220
  2. RIBAVIRIN [Suspect]
     Indication: PRODUCT USED FOR UNKNOWN INDICATION
     Dosage: FROM FIFTIETH WEEK HE STARTED 200 MG DOSE OF RIBAVIRIN.
     Route: 065
     Dates: start: 20120621
  3. RIBAVIRIN [Suspect]
     Dosage: 15TH WEEK
     Route: 065
     Dates: end: 20121220
  4. INCIVO [Suspect]
     Indication: HEPATITIS C
     Route: 048
     Dates: start: 20120621, end: 20121220

REACTIONS (5)
  - Neutropenia [Recovering/Resolving]
  - Mouth haemorrhage [Recovered/Resolved]
  - Lymphoedema [Recovering/Resolving]
  - Platelet count decreased [Recovering/Resolving]
  - Anaemia [Recovering/Resolving]
